FAERS Safety Report 4378595-6 (Version None)
Quarter: 2004Q2

REPORT INFORMATION
  Report Type: 
  Country: None (occurrence: None)
  Receive Date: 20040609
  Receipt Date: 20040602
  Transmission Date: 20050107
  Serious: Yes (Other)
  Sender: FDA-Public Use
  Company Number: 20032

PATIENT
  Age: 47 Year
  Sex: Female
  Weight: 87.0906 kg

DRUGS (1)
  1. NIASPAN [Suspect]
     Indication: HYPERCHOLESTEROLAEMIA
     Dosage: 1000 MG QD PO
     Route: 048
     Dates: start: 20040501, end: 20040531

REACTIONS (1)
  - ANAPHYLACTIC REACTION [None]
